FAERS Safety Report 4750994-X (Version None)
Quarter: 2005Q3

REPORT INFORMATION
  Report Type: 
  Country: None (occurrence: None)
  Receive Date: 20050822
  Receipt Date: 20050811
  Transmission Date: 20060218
  Serious: Yes (Hospitalization, Other)
  Sender: FDA-Public Use
  Company Number: 2005114638

PATIENT
  Age: 73 Year
  Sex: Female
  Weight: 77.1115 kg

DRUGS (10)
  1. CELEBREX [Suspect]
     Indication: OSTEOARTHRITIS
     Dosage: 100 MG (100 MG, 1 IN 1 D),
  2. METOPROLOL TARTRATE [Concomitant]
  3. DEMADEX [Concomitant]
  4. COUMADIN [Concomitant]
  5. PRAVACHOL [Concomitant]
  6. ALL OTHER THERAPEUTIC PRODUCTS (ALL OTHER THERAPEUTIC PRODUCTS) [Concomitant]
  7. FOSAMAX [Concomitant]
  8. CALCIUM (CALCIUM) [Concomitant]
  9. TYLENOL [Concomitant]
  10. OSTEO BI-FLEX  (CHONDROITIN SULFATE, GLUCOSAMINE HYDROCHLORIDE) [Concomitant]

REACTIONS (4)
  - BONE DISORDER [None]
  - HEART RATE IRREGULAR [None]
  - MOVEMENT DISORDER [None]
  - PAIN [None]
